FAERS Safety Report 4359896-4 (Version None)
Quarter: 2004Q2

REPORT INFORMATION
  Report Type: 
  Country: None (occurrence: None)
  Receive Date: 20040518
  Receipt Date: 20040518
  Transmission Date: 20050107
  Serious: Yes (Other)
  Sender: FDA-Public Use
  Company Number: None

PATIENT
  Sex: Male
  Weight: 89.3586 kg

DRUGS (2)
  1. WARFARIN SODIUM [Suspect]
     Indication: THROMBOSIS PROPHYLAXIS
     Dosage: TK ONE T EXCEPT M,W ORAL
     Route: 048
     Dates: start: 20040302, end: 20040515
  2. SALSALATE 750 MG [Suspect]
     Indication: ARTHRALGIA
     Dosage: 2 TABLET BID UTD ORAL
     Route: 048
     Dates: start: 20040302, end: 20040505

REACTIONS (1)
  - HAEMATOCHEZIA [None]
